FAERS Safety Report 6051320-9 (Version None)
Quarter: 2009Q1

REPORT INFORMATION
  Report Type: 
  Country: None (occurrence: None)
  Receive Date: 20090126
  Receipt Date: 20090114
  Transmission Date: 20090719
  Serious: Yes (Hospitalization)
  Sender: FDA-Public Use
  Company Number: FR-PFIZER INC-2009157806

PATIENT

DRUGS (6)
  1. ZYVOXID [Suspect]
     Indication: DIABETIC FOOT
     Route: 048
     Dates: start: 20081231, end: 20090112
  2. GLIMEPIRIDE [Concomitant]
  3. METFORMINE ^MERCK^ [Concomitant]
  4. INSULINE NORDISK [Concomitant]
  5. TRIMETAZIDINE [Concomitant]
  6. PERINDOPRIL [Concomitant]

REACTIONS (3)
  - ABDOMINAL PAIN [None]
  - HEPATIC FUNCTION ABNORMAL [None]
  - JAUNDICE [None]
